FAERS Safety Report 22248817 (Version 1)
Quarter: 2023Q2

REPORT INFORMATION
  Report Type: Spontaneous
  Country: US (occurrence: US)
  Receive Date: 20230425
  Receipt Date: 20230425
  Transmission Date: 20230721
  Serious: Yes (Hospitalization)
  Sender: FDA-Public Use
  Company Number: US-drreddys-LIT/USA/23/0163988

PATIENT
  Age: 71 Year
  Sex: Male

DRUGS (3)
  1. IBUPROFEN [Suspect]
     Active Substance: IBUPROFEN
     Indication: Scleritis
     Route: 048
  2. PREDNISOLONE ACETATE [Suspect]
     Active Substance: PREDNISOLONE ACETATE
     Indication: Scleritis
     Route: 061
  3. PREDNISONE [Suspect]
     Active Substance: PREDNISONE
     Indication: Scleritis

REACTIONS (1)
  - Drug ineffective for unapproved indication [Unknown]
